FAERS Safety Report 17703197 (Version 3)
Quarter: 2020Q2

REPORT INFORMATION
  Report Type: Report from Study
  Country: IT (occurrence: IT)
  Receive Date: 20200424
  Receipt Date: 20200515
  Transmission Date: 20200714
  Serious: Yes (Hospitalization)
  Sender: FDA-Public Use
  Company Number: IT-ACCORD-179470

PATIENT
  Age: 26 Year
  Sex: Female
  Weight: 66 kg

DRUGS (1)
  1. METHOTREXATE. [Suspect]
     Active Substance: METHOTREXATE
     Indication: PRODUCT USED FOR UNKNOWN INDICATION
     Dosage: THERAPEUTIC ERROR
     Route: 048
     Dates: start: 20200129, end: 20200215

REACTIONS (5)
  - Pyrexia [Recovering/Resolving]
  - Dermatitis [Recovering/Resolving]
  - Ulcer [Recovering/Resolving]
  - Leukopenia [Recovering/Resolving]
  - Product dispensing issue [Unknown]

NARRATIVE: CASE EVENT DATE: 20200218
